FAERS Safety Report 11910223 (Version 1)
Quarter: 2016Q1

REPORT INFORMATION
  Report Type: Spontaneous
  Country: US (occurrence: US)
  Receive Date: 20160112
  Receipt Date: 20160112
  Transmission Date: 20160526
  Serious: Yes (Hospitalization, Other)
  Sender: FDA-Public Use
  Company Number: US-APOTEX-2016AP005092

PATIENT
  Age: 80 Year
  Sex: Male

DRUGS (5)
  1. AMIODARONE HCL INJECTION [Suspect]
     Active Substance: AMIODARONE HYDROCHLORIDE
     Indication: VENTRICULAR TACHYCARDIA
     Dosage: 150MG INTRAVENOUS LOAD
     Route: 042
  2. AMIODARONE HCL INJECTION [Suspect]
     Active Substance: AMIODARONE HYDROCHLORIDE
     Dosage: 1MG/MIN FOR 6 HOURS
     Route: 042
  3. PARACETAMOL [Concomitant]
     Active Substance: ACETAMINOPHEN
     Indication: PRODUCT USED FOR UNKNOWN INDICATION
     Dosage: A TOTAL DOSE OF 1300MG IN THE PRECEDING 24 HOURS
     Route: 065
  4. ATORVASTATIN [Concomitant]
     Active Substance: ATORVASTATIN
     Indication: PRODUCT USED FOR UNKNOWN INDICATION
     Route: 065
  5. AMIODARONE HCL INJECTION [Suspect]
     Active Substance: AMIODARONE HYDROCHLORIDE
     Dosage: 0.5MG/MIN FOR 18 HOURS
     Route: 042

REACTIONS (1)
  - Hepatitis acute [Recovered/Resolved]
